FAERS Safety Report 8435644-3 (Version None)
Quarter: 2012Q2

REPORT INFORMATION
  Report Type: 
  Country: None (occurrence: None)
  Receive Date: 20120614
  Receipt Date: 20120608
  Transmission Date: 20120825
  Serious: Yes (Hospitalization)
  Sender: FDA-Public Use
  Company Number: US-GILEAD-2012-0054156

PATIENT
  Sex: Female

DRUGS (12)
  1. LETAIRIS [Suspect]
     Indication: PULMONARY HYPERTENSION
     Dosage: 5 MG, UNK
     Route: 048
     Dates: start: 20120207, end: 20120424
  2. LETAIRIS [Suspect]
     Indication: HEART DISEASE CONGENITAL
  3. MUCOMYST [Concomitant]
  4. PROTONIX [Concomitant]
  5. ADCIRCA [Suspect]
  6. FUROSEMIDE [Concomitant]
  7. QVAR 40 [Concomitant]
  8. ALBUTEROL [Concomitant]
  9. ASPIRIN [Concomitant]
  10. PENICILLIN V [Concomitant]
  11. LISINOPRIL [Concomitant]
  12. SOTALOL HYDROCHLORIDE [Concomitant]

REACTIONS (4)
  - MENINGITIS [None]
  - DIZZINESS [None]
  - HYPOTENSION [None]
  - FATIGUE [None]
